FAERS Safety Report 8873309 (Version 1)
Quarter: 2012Q4

REPORT INFORMATION
  Report Type: Report from Study
  Country: None (occurrence: US)
  Receive Date: 20121030
  Receipt Date: 20121030
  Transmission Date: 20130627
  Serious: Yes (Hospitalization)
  Sender: FDA-Public Use
  Company Number: US-ABBOTT-12P-163-0996406-00

PATIENT
  Age: 23 None
  Sex: Female

DRUGS (4)
  1. HUMIRA PEN [Suspect]
     Indication: CROHN^S DISEASE
     Route: 058
     Dates: start: 201108
  2. HUMIRA PEN [Suspect]
     Route: 058
     Dates: start: 201205
  3. BUSPAR [Concomitant]
     Indication: ANXIETY
     Dosage: Daily
     Route: 048
  4. ZOLOFT [Concomitant]
     Indication: DEPRESSION
     Dosage: Daily
     Route: 048

REACTIONS (7)
  - Mania [Recovered/Resolved]
  - Injection site pain [Recovered/Resolved]
  - Hyperhidrosis [Not Recovered/Not Resolved]
  - Faecal incontinence [Not Recovered/Not Resolved]
  - Salivary hypersecretion [Not Recovered/Not Resolved]
  - Feeling abnormal [Not Recovered/Not Resolved]
  - Drug dose omission [Unknown]
